FAERS Safety Report 23444488 (Version 2)
Quarter: 2025Q3

REPORT INFORMATION
  Report Type: Report from Study
  Country: BR (occurrence: BR)
  Receive Date: 20240125
  Receipt Date: 20250716
  Transmission Date: 20251021
  Serious: Yes (Other)
  Sender: NOVARTIS
  Company Number: BR-002147023-NVSC2024BR016649

PATIENT
  Age: 41 Year
  Sex: Female

DRUGS (1)
  1. ENTRESTO [Suspect]
     Active Substance: SACUBITRIL\VALSARTAN
     Indication: Cardiac failure
     Dosage: 50 MG, QD
     Route: 048

REACTIONS (13)
  - Cerebrovascular accident [Recovered/Resolved with Sequelae]
  - Impaired reasoning [Unknown]
  - Muscle spasms [Unknown]
  - Bradykinesia [Unknown]
  - Limb discomfort [Unknown]
  - Speech disorder developmental [Recovering/Resolving]
  - Hand deformity [Unknown]
  - Syncope [Unknown]
  - Arrhythmia [Unknown]
  - American trypanosomiasis [Unknown]
  - Ejection fraction decreased [Unknown]
  - Condition aggravated [Unknown]
  - Inappropriate schedule of product administration [Unknown]

NARRATIVE: CASE EVENT DATE: 20230705
